FAERS Safety Report 25846868 (Version 1)
Quarter: 2025Q3

REPORT INFORMATION
  Report Type: Spontaneous
  Country: EU (occurrence: EU)
  Receive Date: 20250925
  Receipt Date: 20250925
  Transmission Date: 20251021
  Serious: Yes (Other)
  Sender: AMGEN
  Company Number: EU-AMGEN-ESPSP2025192078

PATIENT

DRUGS (1)
  1. BEVACIZUMAB [Suspect]
     Active Substance: BEVACIZUMAB
     Indication: Neovascular age-related macular degeneration
     Route: 065

REACTIONS (7)
  - Iridocyclitis [Unknown]
  - Vitritis [Unknown]
  - Ocular vasculitis [Unknown]
  - Adverse event [Unknown]
  - Eye inflammation [Unknown]
  - Eye haemorrhage [Unknown]
  - Off label use [Unknown]
